FAERS Safety Report 25703019 (Version 5)
Quarter: 2025Q4

REPORT INFORMATION
  Report Type: Report from Study
  Country: US (occurrence: US)
  Receive Date: 20250819
  Receipt Date: 20251230
  Transmission Date: 20260118
  Serious: Yes (Other)
  Sender: ABBVIE
  Company Number: US-ABBVIE-6346867

PATIENT
  Age: 69 Year
  Sex: Female

DRUGS (5)
  1. SKYRIZI [Suspect]
     Active Substance: RISANKIZUMAB-RZAA
     Indication: Crohn^s disease
     Dosage: STRENGTH;360 MG/2.4 ML ?WEEK 12?DOSE FORM: SOLUTION FOR INJECTION IN CARTRIDGE
     Route: 058
     Dates: start: 20250221, end: 20250221
  2. SKYRIZI [Suspect]
     Active Substance: RISANKIZUMAB-RZAA
     Dosage: STRENGTH;360 MG/2.4 ML?DOSE FORM: SOLUTION FOR INJECTION IN CARTRIDGE
     Route: 058
     Dates: start: 202504
  3. SKYRIZI [Suspect]
     Active Substance: RISANKIZUMAB-RZAA
     Indication: Crohn^s disease
     Dosage: WEEK 0
     Route: 042
     Dates: start: 20241129, end: 20241129
  4. SKYRIZI [Suspect]
     Active Substance: RISANKIZUMAB-RZAA
     Indication: Crohn^s disease
     Dosage: WEEK 4
     Route: 042
  5. SKYRIZI [Suspect]
     Active Substance: RISANKIZUMAB-RZAA
     Indication: Crohn^s disease
     Dosage: WEEK 8
     Route: 042

REACTIONS (16)
  - Benign bone neoplasm [Recovered/Resolved]
  - Spinal cord neoplasm [Recovering/Resolving]
  - Hypoaesthesia [Not Recovered/Not Resolved]
  - Balance disorder [Unknown]
  - Fatigue [Unknown]
  - Asthenia [Unknown]
  - Hyperhidrosis [Recovering/Resolving]
  - Serum ferritin increased [Unknown]
  - Flatulence [Unknown]
  - Insomnia [Unknown]
  - Arthralgia [Unknown]
  - Constipation [Unknown]
  - Abdominal pain [Unknown]
  - Monoplegia [Unknown]
  - Musculoskeletal disorder [Unknown]
  - Diarrhoea [Not Recovered/Not Resolved]

NARRATIVE: CASE EVENT DATE: 20240101
